FAERS Safety Report 5009698-0 (Version None)
Quarter: 2006Q2

REPORT INFORMATION
  Report Type: 
  Country: None (occurrence: None)
  Receive Date: 20060522
  Receipt Date: 20060509
  Transmission Date: 20061013
  Serious: Yes (Hospitalization, Other)
  Sender: FDA-Public Use
  Company Number: 2006064302

PATIENT
  Age: 42 Year
  Sex: Female

DRUGS (1)
  1. CELEBREX [Suspect]
     Indication: ILL-DEFINED DISORDER

REACTIONS (9)
  - AMNESIA [None]
  - ARTHRITIS [None]
  - BLINDNESS [None]
  - BRAIN OPERATION [None]
  - CEREBRAL THROMBOSIS [None]
  - DEAFNESS [None]
  - FATIGUE [None]
  - MONOPLEGIA [None]
  - THROMBOSIS [None]
